FAERS Safety Report 21397766 (Version 2)
Quarter: 2022Q4

REPORT INFORMATION
  Report Type: Spontaneous
  Country: US (occurrence: US)
  Receive Date: 20220930
  Receipt Date: 20221107
  Transmission Date: 20230112
  Serious: No
  Sender: FDA-Public Use
  Company Number: US-DSJP-DSU-2022-135380

PATIENT
  Sex: Female

DRUGS (7)
  1. ENHERTU [Suspect]
     Active Substance: FAM-TRASTUZUMAB DERUXTECAN-NXKI
     Indication: Product used for unknown indication
     Dosage: UNK
     Route: 042
  2. VARUBI [ROLAPITANT] [Concomitant]
     Indication: Product used for unknown indication
     Dosage: UNK
     Route: 048
  3. ATIVAN [Concomitant]
     Active Substance: LORAZEPAM
     Indication: Product used for unknown indication
     Dosage: 1 MG
  4. ALOXI [Concomitant]
     Active Substance: PALONOSETRON HYDROCHLORIDE
     Indication: Product used for unknown indication
     Dosage: UNK
     Route: 042
  5. DEX [DEXKETOPROFEN] [Concomitant]
     Indication: Product used for unknown indication
     Dosage: 8 MG, X4 DAYS
     Route: 042
  6. DEX [DEXKETOPROFEN] [Concomitant]
     Dosage: 6 MG FOR 2 DAYS
     Route: 042
  7. DEX [DEXKETOPROFEN] [Concomitant]
     Dosage: 4 MG FOR 2 DAYS
     Route: 042

REACTIONS (2)
  - Nausea [Unknown]
  - Unevaluable event [Unknown]
